FAERS Safety Report 8458259-X (Version None)
Quarter: 2012Q2

REPORT INFORMATION
  Report Type: 
  Country: None (occurrence: None)
  Receive Date: 20120615
  Receipt Date: 20120524
  Transmission Date: 20120825
  Serious: Yes (Death)
  Sender: FDA-Public Use
  Company Number: 2012POI057500090

PATIENT
  Age: 20 Month
  Sex: Male

DRUGS (4)
  1. AMITRIPTYLINE HCL [Suspect]
  2. ANTICONVULSANT [Suspect]
  3. BENZODIAZEPINE [Suspect]
  4. METHADONE HCL [Suspect]

REACTIONS (1)
  - SEPSIS [None]
